FAERS Safety Report 5064904-1 (Version None)
Quarter: 2006Q3

REPORT INFORMATION
  Report Type: 
  Country: None (occurrence: None)
  Receive Date: 20060727
  Receipt Date: 20060727
  Transmission Date: 20061208
  Serious: Yes (Life-Threatening, Hospitalization)
  Sender: FDA-Public Use
  Company Number: None

PATIENT
  Age: 80 Year
  Sex: Male

DRUGS (6)
  1. RITUXIMAB [Suspect]
     Indication: MANTLE CELL LYMPHOMA RECURRENT
     Dates: start: 20050621
  2. THALIDOMIDE [Suspect]
     Indication: MANTLE CELL LYMPHOMA RECURRENT
     Dates: start: 20050621
  3. PREDNISONE [Suspect]
     Indication: MANTLE CELL LYMPHOMA RECURRENT
     Dates: start: 20050621
  4. ETOPOSIDE [Suspect]
     Indication: MANTLE CELL LYMPHOMA RECURRENT
     Dates: start: 20050621
  5. PROCARBAZINE [Suspect]
     Indication: MANTLE CELL LYMPHOMA RECURRENT
     Dates: start: 20050621
  6. CYTOXAN [Suspect]
     Indication: MANTLE CELL LYMPHOMA RECURRENT
     Dates: start: 20050621

REACTIONS (2)
  - ATYPICAL FIBROXANTHOMA [None]
  - SQUAMOUS CELL CARCINOMA [None]
